FAERS Safety Report 6769360-0 (Version None)
Quarter: 2010Q2

REPORT INFORMATION
  Report Type: 
  Country: None (occurrence: None)
  Receive Date: 20100607
  Receipt Date: 20100524
  Transmission Date: 20101027
  Serious: Yes (Death, Hospitalization)
  Sender: FDA-Public Use
  Company Number: B0540964A

PATIENT
  Age: 11 Year
  Sex: Female
  Weight: 35.9249 kg

DRUGS (2)
  1. WELLBUTRIN [Suspect]
     Indication: DEPRESSION
     Dosage: ORAL
     Dates: start: 20080613, end: 20080705
  2. LORAZEPAM [Suspect]
     Indication: CONVULSION
     Dosage: 4 MG/ INTRAVENOUS INFUSION

REACTIONS (17)
  - ANOXIC ENCEPHALOPATHY [None]
  - BRADYCARDIA [None]
  - BRAIN DEATH [None]
  - CARDIAC ARREST [None]
  - COMA [None]
  - COMPLETED SUICIDE [None]
  - CONFUSIONAL STATE [None]
  - ELECTROCARDIOGRAM QRS COMPLEX PROLONGED [None]
  - FALL [None]
  - HALLUCINATION, VISUAL [None]
  - INTENTIONAL OVERDOSE [None]
  - LETHARGY [None]
  - MUSCLE FATIGUE [None]
  - RESPIRATORY FAILURE [None]
  - RESPIRATORY RATE INCREASED [None]
  - SINUS TACHYCARDIA [None]
  - STATUS EPILEPTICUS [None]
